FAERS Safety Report 12056825 (Version 1)
Quarter: 2016Q1

REPORT INFORMATION
  Report Type: Spontaneous
  Country: JP (occurrence: JP)
  Receive Date: 20160210
  Receipt Date: 20160210
  Transmission Date: 20160526
  Serious: Yes (Hospitalization)
  Sender: FDA-Public Use
  Company Number: JP-009507513-1601JPN008784

PATIENT
  Age: 62 Year
  Sex: Male

DRUGS (13)
  1. LEVOFLOXACIN. [Concomitant]
     Active Substance: LEVOFLOXACIN
     Dosage: DAILY DOSE UNKNOWN
     Route: 065
  2. AMLODIPINE [Concomitant]
     Active Substance: AMLODIPINE BESYLATE
     Dosage: DAILY DOSE UNKNOWN
     Route: 065
  3. URSO [Concomitant]
     Active Substance: URSODIOL
     Dosage: DAILY DOSE UNKNOWN
  4. BIOFERMIN R [Concomitant]
     Active Substance: BACILLUS SUBTILIS\LACTOBACILLUS ACIDOPHILUS\STREPTOCOCCUS FAECAIS
     Dosage: DAILY DOSE UNKNOWN
     Route: 065
  5. ATORVASTATIN [Concomitant]
     Active Substance: ATORVASTATIN
     Dosage: DAILY DOSE UNKNOWN
     Route: 065
  6. LANSOPRAZOLE. [Concomitant]
     Active Substance: LANSOPRAZOLE
     Dosage: DAILY DOSE UNKNOWN
     Route: 065
  7. UBRETID [Concomitant]
     Active Substance: DISTIGMINE BROMIDE
     Dosage: DAILY DOSE UNKNOWN
     Route: 065
  8. JANUVIA [Suspect]
     Active Substance: SITAGLIPTIN PHOSPHATE
     Indication: DIABETES MELLITUS
     Dosage: 50 MG, QD
     Route: 048
  9. LOXOPROFEN [Concomitant]
     Active Substance: LOXOPROFEN
     Dosage: DAILY DOSE UNKNOWN
     Route: 065
  10. IRBETAN [Concomitant]
     Active Substance: IRBESARTAN
     Dosage: DAILY DOSE UNKNOWN
     Route: 065
  11. CINAL [Concomitant]
     Active Substance: ASCORBIC ACID\CALCIUM PANTOTHENATE
     Dosage: DAILY DOSE UNKNOWN
     Route: 065
  12. SODIUM FERROUS CITRATE [Concomitant]
     Active Substance: SODIUM FERROUS CITRATE
     Dosage: DAILY DOSE UNKNOWN
     Route: 065
  13. MAGMITT [Concomitant]
     Active Substance: MAGNESIUM OXIDE
     Dosage: DAILY DOSE UNKNOWN
     Route: 065

REACTIONS (4)
  - Diarrhoea [Unknown]
  - Road traffic accident [Unknown]
  - Hypoglycaemia [Recovered/Resolved]
  - Medication error [Unknown]

NARRATIVE: CASE EVENT DATE: 20151124
